FAERS Safety Report 8367887-1 (Version None)
Quarter: 2012Q2

REPORT INFORMATION
  Report Type: 
  Country: None (occurrence: None)
  Receive Date: 20120517
  Receipt Date: 20120509
  Transmission Date: 20120825
  Serious: Yes (Other)
  Sender: FDA-Public Use
  Company Number: US-CELGENEUS-163-21880-12050469

PATIENT
  Sex: Female

DRUGS (20)
  1. K-TAB [Concomitant]
     Route: 065
  2. HYTRIN [Concomitant]
     Route: 065
  3. SPIRIVA [Concomitant]
     Route: 065
  4. REVLIMID [Suspect]
     Dosage: 15 MILLIGRAM
     Route: 048
     Dates: start: 20120501
  5. PLAVIX [Concomitant]
     Route: 065
  6. NOVOLOG [Concomitant]
     Route: 065
  7. TEKTURNA [Concomitant]
     Route: 065
  8. THEOPHYLLINE [Concomitant]
     Route: 065
  9. TRAMADOL HYDROCHLORIDE [Concomitant]
     Route: 065
  10. NITROGLYCERIN [Concomitant]
     Route: 065
  11. ASPIRIN [Concomitant]
     Route: 065
  12. SYMBICORT [Concomitant]
     Route: 065
  13. COMBIVENT [Concomitant]
     Route: 065
  14. TOPROL-XL [Concomitant]
     Route: 065
  15. LISINOPRIL [Concomitant]
     Route: 065
  16. NIASPAN [Concomitant]
     Route: 065
  17. LASIX [Concomitant]
     Route: 065
  18. REVLIMID [Suspect]
     Indication: MULTIPLE MYELOMA
     Dosage: 25 MILLIGRAM
     Route: 048
     Dates: start: 20120329
  19. ALDACTONE [Concomitant]
     Route: 065
  20. TYLENOL (CAPLET) [Concomitant]
     Route: 065

REACTIONS (4)
  - FULL BLOOD COUNT DECREASED [None]
  - INFLUENZA [None]
  - DYSPNOEA [None]
  - GASTROINTESTINAL DISORDER [None]
